FAERS Safety Report 7907094-7 (Version None)
Quarter: 2011Q4

REPORT INFORMATION
  Report Type: 
  Country: None (occurrence: None)
  Receive Date: 20111110
  Receipt Date: 20110211
  Transmission Date: 20120403
  Serious: No
  Sender: FDA-Public Use
  Company Number: US-ASTRAZENECA-2011SE08560

PATIENT
  Age: 54 Year
  Sex: Female

DRUGS (2)
  1. LISINOPRIL [Suspect]
     Route: 048
  2. CRESTOR [Concomitant]

REACTIONS (4)
  - LUNG DISORDER [None]
  - COUGH [None]
  - ADVERSE REACTION [None]
  - ADVERSE DRUG REACTION [None]
